FAERS Safety Report 8991934 (Version 3)
Quarter: 2013Q1

REPORT INFORMATION
  Report Type: Report from Study
  Country: IL (occurrence: IL)
  Receive Date: 20121231
  Receipt Date: 20130325
  Transmission Date: 20140127
  Serious: Yes (Hospitalization)
  Sender: FDA-Public Use
  Company Number: IL-VERTEX PHARMACEUTICALS INC.-2012-026603

PATIENT
  Age: 20 Year
  Sex: Male
  Weight: 53 kg

DRUGS (4)
  1. VX-950 (TELAPREVIR) [Suspect]
     Indication: HEPATITIS C
     Dosage: 1125 MG, BID
     Route: 048
  2. Z-PEGYLATED INTERFERON-2A [Suspect]
     Indication: HEPATITIS C
     Dosage: 180 ?G, UNK
     Route: 058
  3. Z-RIBAVIRIN [Suspect]
     Indication: HEPATITIS C
     Dosage: 400 MG, BID
     Route: 048
  4. Z-RIBAVIRIN [Suspect]
     Dosage: 400MG PER DAY
     Dates: start: 201212

REACTIONS (2)
  - Anaemia [Recovered/Resolved]
  - Pyrexia [Recovered/Resolved]
